FAERS Safety Report 12730152 (Version 4)
Quarter: 2016Q4

REPORT INFORMATION
  Report Type: Report from Study
  Country: US (occurrence: US)
  Receive Date: 20160909
  Receipt Date: 20161021
  Transmission Date: 20170207
  Serious: Yes (Death, Hospitalization)
  Sender: FDA-Public Use
  Company Number: US-ACTELION-A-US2016-141736

PATIENT
  Age: 53 Year
  Sex: Female

DRUGS (3)
  1. OXYGEN. [Concomitant]
     Active Substance: OXYGEN
  2. WARFARIN [Concomitant]
     Active Substance: WARFARIN
  3. VELETRI [Suspect]
     Active Substance: EPOPROSTENOL
     Indication: PULMONARY HYPERTENSION
     Dosage: 5 NG/KG, PER MIN
     Route: 042
     Dates: start: 20160906, end: 20161009

REACTIONS (8)
  - Cardio-respiratory arrest [Unknown]
  - Respiratory failure [Unknown]
  - Vision blurred [Recovered/Resolved]
  - Rash [Unknown]
  - Syncope [Recovered/Resolved]
  - Death [Fatal]
  - Renal failure [Unknown]
  - Dizziness [Unknown]

NARRATIVE: CASE EVENT DATE: 20160908
